FAERS Safety Report 20078804 (Version 2)
Quarter: 2021Q4

REPORT INFORMATION
  Report Type: Spontaneous
  Country: KR (occurrence: KR)
  Receive Date: 20211117
  Receipt Date: 20211216
  Transmission Date: 20220303
  Serious: Yes (Other)
  Sender: FDA-Public Use
  Company Number: KR-ORGANON-O2108KOR001717

PATIENT
  Sex: Female

DRUGS (1)
  1. ETONOGESTREL [Suspect]
     Active Substance: ETONOGESTREL
     Dosage: 1 IMPLANT ROD
     Route: 059
     Dates: start: 20181031, end: 20210818

REACTIONS (4)
  - Device dislocation [Recovered/Resolved]
  - Device issue [Recovered/Resolved]
  - Pain in extremity [Unknown]
  - Complication of device removal [Recovered/Resolved]
